FAERS Safety Report 25955397 (Version 1)
Quarter: 2025Q4

REPORT INFORMATION
  Report Type: Spontaneous
  Country: US (occurrence: US)
  Receive Date: 20251024
  Receipt Date: 20251024
  Transmission Date: 20260118
  Serious: Yes (Hospitalization, Other)
  Sender: STRIDES
  Company Number: US-STRIDES ARCOLAB LIMITED-2025SP013282

PATIENT
  Age: 8 Decade
  Sex: Male

DRUGS (3)
  1. LISINOPRIL [Interacting]
     Active Substance: LISINOPRIL
     Indication: Lipid management
     Dosage: 10 MILLIGRAM
     Route: 065
  2. SIMVASTATIN [Interacting]
     Active Substance: SIMVASTATIN
     Indication: Lipid management
     Dosage: 20 MILLIGRAM, QD
     Route: 065
  3. SIMVASTATIN [Interacting]
     Active Substance: SIMVASTATIN
     Dosage: 40 MILLIGRAM, QD
     Route: 065

REACTIONS (2)
  - Angioedema [Recovered/Resolved]
  - Drug interaction [Unknown]
